FAERS Safety Report 6736815-4 (Version None)
Quarter: 2010Q2

REPORT INFORMATION
  Report Type: 
  Country: None (occurrence: None)
  Receive Date: 20100521
  Receipt Date: 20100510
  Transmission Date: 20101027
  Serious: Yes (Hospitalization, Other)
  Sender: FDA-Public Use
  Company Number: US-ELI_LILLY_AND_COMPANY-US201002006158

PATIENT
  Sex: Female

DRUGS (9)
  1. FORTEO [Suspect]
     Indication: OSTEOPOROSIS
     Dosage: 20 UG, DAILY (1/D)
     Route: 058
     Dates: start: 20081001, end: 20090801
  2. FORTEO [Suspect]
     Dosage: 20 UG, DAILY (1/D)
  3. CALCIUM [Concomitant]
     Dosage: 630 MG, 2/D
     Route: 065
  4. ASPIRIN [Concomitant]
     Dosage: 81 MG, DAILY (1/D)
     Route: 065
     Dates: start: 20090801
  5. PLAVIX [Concomitant]
     Dosage: 75 MG, DAILY (1/D)
     Route: 065
     Dates: start: 20090801
  6. LISINOPRIL [Concomitant]
     Dosage: 10 MG, DAILY (1/D)
     Route: 065
     Dates: start: 20090101
  7. CARVEDILOL [Concomitant]
     Dosage: 3.125 MG, DAILY (1/D)
     Route: 065
     Dates: start: 20090801
  8. NEURONTIN [Concomitant]
     Dosage: 100 MG, 2/D
     Route: 065
     Dates: start: 20080101
  9. PANTOPRAZOLE [Concomitant]
     Dosage: 40 MG, 2/D
     Route: 065
     Dates: start: 20091101

REACTIONS (2)
  - FATIGUE [None]
  - MYOCARDIAL INFARCTION [None]
